FAERS Safety Report 7379638-8 (Version None)
Quarter: 2011Q1

REPORT INFORMATION
  Report Type: 
  Country: None (occurrence: None)
  Receive Date: 20110324
  Receipt Date: 20110324
  Transmission Date: 20110831
  Serious: Yes (Hospitalization)
  Sender: FDA-Public Use
  Company Number: None

PATIENT
  Age: 63 Year
  Sex: Male

DRUGS (1)
  1. ZOMETA [Suspect]
     Dosage: 4 MG EVERY THREE MONTHS IV DRIP
     Route: 041

REACTIONS (4)
  - DISEASE RECURRENCE [None]
  - ABSCESS [None]
  - SWELLING FACE [None]
  - OSTEONECROSIS [None]
